FAERS Safety Report 6619297-2 (Version None)
Quarter: 2010Q1

REPORT INFORMATION
  Report Type: 
  Country: None (occurrence: None)
  Receive Date: 20100303
  Receipt Date: 20100224
  Transmission Date: 20100710
  Serious: Yes (Other)
  Sender: FDA-Public Use
  Company Number: 505248

PATIENT
  Age: 67 Year
  Sex: Male
  Weight: 75 kg

DRUGS (5)
  1. CARBOPLATIN [Suspect]
     Indication: NON-SMALL CELL LUNG CANCER
     Dosage: 350 MG
  2. PACLITAXEL [Suspect]
     Indication: NON-SMALL CELL LUNG CANCER
     Dosage: 210 MG
  3. CIMETIDINE [Suspect]
     Indication: ADJUVANT THERAPY
  4. ONDANSETRON [Concomitant]
  5. (DIHYDROCHLORIDE BITARTRATE) [Concomitant]

REACTIONS (2)
  - ABDOMINAL PAIN [None]
  - PSEUDOMEMBRANOUS COLITIS [None]
